FAERS Safety Report 20785660 (Version 1)
Quarter: 2022Q2

REPORT INFORMATION
  Report Type: Spontaneous
  Country: None (occurrence: CA)
  Receive Date: 20220504
  Receipt Date: 20220504
  Transmission Date: 20220720
  Serious: Yes (Disabling, Other)
  Sender: FDA-Public Use
  Company Number: CA-Edgewell Personal Care, LLC-2128469

PATIENT
  Sex: Female

DRUGS (1)
  1. HAWAIIAN TROPIC (AVOBENZONE\OCTOCRYLENE\OXYBENZONE) [Suspect]
     Active Substance: AVOBENZONE\OCTOCRYLENE\OXYBENZONE
     Indication: Prophylaxis against solar radiation
     Route: 061
     Dates: start: 20220413

REACTIONS (6)
  - Hypersensitivity [Unknown]
  - Chemical burn [Unknown]
  - Rash pruritic [Unknown]
  - Pain [Unknown]
  - Skin burning sensation [Unknown]
  - Impaired work ability [Unknown]

NARRATIVE: CASE EVENT DATE: 20220413
